FAERS Safety Report 7224289-9 (Version None)
Quarter: 2011Q1

REPORT INFORMATION
  Report Type: 
  Country: None (occurrence: None)
  Receive Date: 20110106
  Receipt Date: 20110106
  Transmission Date: 20110831
  Serious: Yes (Hospitalization)
  Sender: FDA-Public Use
  Company Number: None

PATIENT
  Age: 62 Year
  Sex: Female
  Weight: 77 kg

DRUGS (20)
  1. COUMADIN [Suspect]
     Indication: PULMONARY EMBOLISM
     Dosage: 5MG QHS PO
     Route: 048
  2. COUMADIN [Suspect]
     Indication: DEEP VEIN THROMBOSIS
     Dosage: 5MG QHS PO
     Route: 048
  3. FLONASE [Concomitant]
  4. PROAIR HFA [Concomitant]
  5. CYANOCOBALAMIN [Concomitant]
  6. OMEPRAZOLE [Concomitant]
  7. SUMATRIPTAN [Concomitant]
  8. M.V.I. [Concomitant]
  9. PRAVASTATIN [Concomitant]
  10. KLOR-CON [Concomitant]
  11. SERTRALINE [Concomitant]
  12. GABAPENTIN [Concomitant]
  13. TRAZODONE HCL [Concomitant]
  14. ADVAIR [Concomitant]
  15. FLEXOFENADINE [Concomitant]
  16. LYRICA [Concomitant]
  17. RANITIDINE [Concomitant]
  18. METFORMIN HCL [Concomitant]
  19. OXYCODONE HCL [Concomitant]
  20. TYLENOL-500 [Concomitant]

REACTIONS (6)
  - FALL [None]
  - SHOCK HAEMORRHAGIC [None]
  - HYPOVOLAEMIC SHOCK [None]
  - INTERNATIONAL NORMALISED RATIO INCREASED [None]
  - PAIN IN EXTREMITY [None]
  - HAEMATOMA [None]
